FAERS Safety Report 23873572 (Version 1)
Quarter: 2024Q2

REPORT INFORMATION
  Report Type: Spontaneous
  Country: US (occurrence: US)
  Receive Date: 20240520
  Receipt Date: 20240520
  Transmission Date: 20240715
  Serious: No
  Sender: FDA-Public Use
  Company Number: US-Stemline Therapeutics, Inc.-2024ST000995

PATIENT
  Age: 64 Year
  Sex: Female

DRUGS (2)
  1. ORSERDU [Suspect]
     Active Substance: ELACESTRANT
     Indication: Product used for unknown indication
     Route: 048
     Dates: start: 20231121
  2. ORSERDU [Suspect]
     Active Substance: ELACESTRANT
     Route: 048

REACTIONS (8)
  - Feeling abnormal [Unknown]
  - Product availability issue [Recovered/Resolved]
  - Frequent bowel movements [Unknown]
  - Nausea [Unknown]
  - Vomiting [Unknown]
  - Asthenia [Unknown]
  - Fatigue [Unknown]
  - Decreased appetite [Unknown]
